FAERS Safety Report 14023926 (Version 2)
Quarter: 2018Q2

REPORT INFORMATION
  Report Type: Spontaneous
  Country: US (occurrence: US)
  Receive Date: 20170929
  Receipt Date: 20180419
  Transmission Date: 20180711
  Serious: No
  Sender: FDA-Public Use
  Company Number: US-GALDERMA-US17004383

PATIENT
  Sex: Female

DRUGS (3)
  1. CETAPHIL DERMACONTROL FOAM WASH [Concomitant]
     Active Substance: COSMETICS
     Indication: THERAPEUTIC SKIN CARE TOPICAL
     Route: 061
  2. BENZOYL PEROXIDE. [Concomitant]
     Active Substance: BENZOYL PEROXIDE
     Indication: ACNE
     Route: 061
     Dates: start: 201605, end: 201705
  3. ADAPALENE (ADAPALENE) GEL, 0.1% [Suspect]
     Active Substance: ADAPALENE
     Indication: ACNE
     Dosage: 0.1%
     Route: 061
     Dates: start: 201605, end: 201705

REACTIONS (1)
  - Drug ineffective [Recovered/Resolved]
